FAERS Safety Report 9055259 (Version 2)
Quarter: 2013Q2

REPORT INFORMATION
  Report Type: Spontaneous
  Country: FR (occurrence: FR)
  Receive Date: 20130206
  Receipt Date: 20130410
  Transmission Date: 20140414
  Serious: Yes (Hospitalization, Other)
  Sender: FDA-Public Use
  Company Number: FR-PFIZER INC-2013039617

PATIENT
  Age: 76 Year
  Sex: Male
  Weight: 65 kg

DRUGS (15)
  1. FLUOROURACILE PFIZER [Suspect]
     Dosage: 2100 MG/M2, EVERY 15 DAYS (8 COURSES)
     Route: 042
     Dates: start: 20090619, end: 20091023
  2. FLUOROURACILE PFIZER [Suspect]
     Dosage: 2100 MG/M2, EVERY 15 DAYS (5 COURSES)
     Route: 042
     Dates: start: 20100303, end: 20100526
  3. FLUOROURACILE PFIZER [Suspect]
     Dosage: 2100 MG/M2, EVERY 15 DAYS (4 COURSES)
     Route: 042
     Dates: start: 20120321, end: 20120502
  4. OXALIPLATIN [Concomitant]
     Dosage: 63 MG/M2, (4 COURSES)
     Route: 042
     Dates: start: 20120321, end: 20120502
  5. OXALIPLATIN [Concomitant]
     Dosage: 130 MG/M2, UNK
     Route: 042
     Dates: start: 20120702
  6. LEVOFOLINATE [Concomitant]
     Dosage: 200 MG/M2, (8 COURSES)
     Route: 042
     Dates: start: 20090619, end: 20091023
  7. LEVOFOLINATE [Concomitant]
     Dosage: 200 MG/M2, (5 COURSES)
     Route: 042
     Dates: start: 20100303, end: 20100526
  8. LEVOFOLINATE [Concomitant]
     Dosage: 200 MG/M2, (4 COURSES)
     Route: 042
     Dates: start: 20120321, end: 20120502
  9. LEXOMIL [Concomitant]
     Dosage: UNK
     Route: 048
  10. YOHIMBINE ^HOUDE^ [Concomitant]
     Route: 048
  11. PLAVIX [Concomitant]
  12. IKOREL [Concomitant]
  13. NATISPRAY [Concomitant]
  14. TEMERIT [Concomitant]
  15. LERCAN [Concomitant]

REACTIONS (1)
  - Acute coronary syndrome [Recovered/Resolved with Sequelae]
